FAERS Safety Report 6169593-0 (Version None)
Quarter: 2009Q2

REPORT INFORMATION
  Report Type: 
  Country: None (occurrence: None)
  Receive Date: 20090428
  Receipt Date: 20090422
  Transmission Date: 20091009
  Serious: Yes (Hospitalization)
  Sender: FDA-Public Use
  Company Number: FR-BRISTOL-MYERS SQUIBB COMPANY-14562615

PATIENT
  Age: 64 Year
  Sex: Female

DRUGS (12)
  1. ERBITUX [Suspect]
     Indication: OROPHARYNGEAL CANCER STAGE UNSPECIFIED
     Route: 042
     Dates: start: 20090312, end: 20090312
  2. PARACETAMOL [Suspect]
     Route: 048
  3. JOSACINE [Suspect]
     Indication: LUNG INFECTION
     Dosage: 1 DF= 1 GRAM TABLET
     Route: 048
     Dates: start: 20090310, end: 20090314
  4. VOGALENE [Suspect]
     Indication: LUNG INFECTION
     Dosage: 1 DF= 7.5 MG TABLET
     Route: 048
     Dates: start: 20090310, end: 20090314
  5. LAMALINE [Suspect]
     Indication: LUNG INFECTION
     Dosage: 1 DF= 1 CAPSULE
     Route: 048
     Dates: start: 20090310, end: 20090314
  6. RADIOTHERAPY [Concomitant]
     Indication: OROPHARYNGEAL CANCER STAGE UNSPECIFIED
  7. DURAGESIC-100 [Concomitant]
  8. ROVAMYCINE [Concomitant]
     Dosage: SOLUTION FOR INJECTION
     Route: 042
     Dates: start: 20090314
  9. ROCEPHIN [Concomitant]
     Dosage: SOLUTION FOR INJECTION
     Route: 042
     Dates: start: 20090314
  10. FUNGIZONE [Concomitant]
     Dosage: 1 DF = 250MG CAPSULE
     Route: 048
     Dates: start: 20090314
  11. LOVENOX [Concomitant]
     Dosage: SOLUTION FOR INJECTION
     Route: 058
     Dates: start: 20090314
  12. ACTISKENAN CAPS [Concomitant]
     Route: 048
     Dates: start: 20090314

REACTIONS (1)
  - CYTOLYTIC HEPATITIS [None]
